FAERS Safety Report 13912618 (Version 1)
Quarter: 2017Q3

REPORT INFORMATION
  Report Type: Spontaneous
  Country: TW (occurrence: TW)
  Receive Date: 20170828
  Receipt Date: 20170828
  Transmission Date: 20171127
  Serious: Yes (Death, Hospitalization, Other)
  Sender: FDA-Public Use
  Company Number: TW-GLAXOSMITHKLINE-TW2017131465

PATIENT
  Age: 40 Year
  Sex: Male

DRUGS (5)
  1. ZALCITABINE [Suspect]
     Active Substance: ZALCITABINE
     Indication: ANTIRETROVIRAL THERAPY
     Dosage: UNK
     Route: 065
     Dates: start: 199704
  2. SAQUINAVIR [Suspect]
     Active Substance: SAQUINAVIR
     Indication: ANTIRETROVIRAL THERAPY
     Dosage: UNK
     Route: 065
     Dates: start: 199704
  3. CEPHAPIRIN [Concomitant]
     Active Substance: CEPHAPIRIN SODIUM
     Indication: PRODUCT USED FOR UNKNOWN INDICATION
     Dosage: UNK
  4. LAMIVUDINE. [Suspect]
     Active Substance: LAMIVUDINE
     Indication: ANTIRETROVIRAL THERAPY
     Dosage: UNK
     Route: 065
     Dates: start: 199704
  5. GENTAMYCIN SULFATE [Concomitant]
     Active Substance: GENTAMICIN SULFATE
     Indication: PRODUCT USED FOR UNKNOWN INDICATION
     Dosage: UNK

REACTIONS (2)
  - Acute respiratory failure [Fatal]
  - Immune reconstitution inflammatory syndrome associated Kaposi^s sarcoma [Fatal]
